FAERS Safety Report 8626896 (Version 6)
Quarter: 2012Q4

REPORT INFORMATION
  Report Type: 
  Country: JP (occurrence: JP)
  Receive Date: 20120620
  Receipt Date: 20121030
  Transmission Date: 20130627
  Serious: Yes (Life-Threatening)
  Sender: FDA-Public Use
  Company Number: JP-ABBOTT-12P-087-0946983-00

PATIENT
  Age: 74 Year
  Sex: Male

DRUGS (12)
  1. CLARITH [Suspect]
     Indication: PRODUCT USED FOR UNKNOWN INDICATION
     Dosage: 200 mg (200 mg, BID)
     Route: 048
     Dates: start: 20120517, end: 201206
  2. BAYASPIRIN [Concomitant]
     Indication: CEREBRAL INFARCTION
     Dosage: SID
     Route: 048
  3. MEROPEN [Concomitant]
     Indication: PNEUMONIA
     Dosage: SID
     Route: 042
     Dates: start: 20120501, end: 20120517
  4. FUROSEMIDE [Concomitant]
     Indication: RENAL FAILURE CHRONIC
     Dosage: SID
     Route: 048
  5. ALFACALCIDOL [Concomitant]
     Indication: HYPERPARATHYROIDISM SECONDARY
     Dosage: SID
     Route: 048
  6. NESINE [Concomitant]
     Indication: DIABETES MELLITUS
     Dosage: SID
     Route: 048
     Dates: start: 20120116
  7. ANPLEG [Concomitant]
     Indication: PERIPHERAL ARTERIAL OCCLUSIVE DISEASE
     Route: 048
  8. SIGMART [Concomitant]
     Indication: MYOCARDIAL ISCHAEMIA
     Route: 048
  9. HALCION [Concomitant]
     Indication: INSOMNIA
     Dosage: SID
     Route: 048
  10. CALTAN [Concomitant]
     Indication: HYPERPHOSPHATAEMIA
     Route: 048
     Dates: start: 20090506
  11. FOSRENOL [Concomitant]
     Indication: HYPERPHOSPHATAEMIA
     Route: 048
     Dates: start: 20111221
  12. AMLODIN [Concomitant]
     Indication: HYPERTENSION
     Dosage: SID
     Route: 048

REACTIONS (1)
  - Pancytopenia [Not Recovered/Not Resolved]
